FAERS Safety Report 15315773 (Version 1)
Quarter: 2018Q3

REPORT INFORMATION
  Report Type: Spontaneous
  Country: US (occurrence: US)
  Receive Date: 20180815
  Receipt Date: 20180815
  Transmission Date: 20181010
  Serious: No
  Sender: FDA-Public Use
  Company Number: None

PATIENT
  Age: 69 Year
  Sex: Female
  Weight: 45.36 kg

DRUGS (1)
  1. IMPAX EPINEPHRINE INJECTION, USP 0.3 MG [Suspect]
     Active Substance: EPINEPHRINE
     Indication: FOOD ALLERGY
     Dosage: 1 INJECTOR
     Dates: start: 20180721

REACTIONS (3)
  - Dysphagia [None]
  - Oral disorder [None]
  - Urticaria [None]

NARRATIVE: CASE EVENT DATE: 20180721
